FAERS Safety Report 15426518 (Version 1)
Quarter: 2018Q3

REPORT INFORMATION
  Report Type: Report from Study
  Country: DE (occurrence: DE)
  Receive Date: 20180925
  Receipt Date: 20180925
  Transmission Date: 20181010
  Serious: Yes (Hospitalization, Other)
  Sender: FDA-Public Use
  Company Number: DE-TEVA-2018-DE-958160

PATIENT
  Age: 45 Year
  Sex: Female

DRUGS (23)
  1. BUPRENORPHIN ACINO [Concomitant]
     Indication: PAIN
     Dosage: 10 ?G, OTHER (PER HOUR)
     Route: 062
  2. FORMOTEROL [Concomitant]
     Active Substance: FORMOTEROL
     Indication: CHRONIC OBSTRUCTIVE PULMONARY DISEASE
     Dosage: 12 MICROGRAM DAILY; 12 ?G, 2X/DAY:BID
     Route: 055
     Dates: start: 2015
  3. HYDROCORTISONE. [Concomitant]
     Active Substance: HYDROCORTISONE
     Dosage: UNK, AS REQ^D
     Route: 048
     Dates: start: 20160921, end: 20161016
  4. PREDNISOLONE ACETATE. [Concomitant]
     Active Substance: PREDNISOLONE ACETATE
     Indication: UVEITIS
     Dosage: 10 MILLIGRAM DAILY; 10 MG, 1X/DAY:QD
     Route: 047
     Dates: start: 2016
  5. PANTOPRAZOL [Concomitant]
     Active Substance: PANTOPRAZOLE SODIUM
     Indication: GASTRITIS PROPHYLAXIS
     Dosage: 40 MILLIGRAM DAILY; 40 MG, 2X/DAY:BID
     Route: 048
     Dates: start: 2015, end: 201610
  6. ADALIMUMAB [Concomitant]
     Active Substance: ADALIMUMAB
     Indication: UVEITIS
     Dosage: 40 MG, OTHER (EVERY OTHER WEEK)
     Route: 058
     Dates: start: 2016
  7. CIPROFLOXACIN. [Concomitant]
     Active Substance: CIPROFLOXACIN
     Indication: SYRINGE ISSUE
     Route: 065
  8. HYDROCHLOROTHIAZIDE. [Concomitant]
     Active Substance: HYDROCHLOROTHIAZIDE
     Indication: HYPERTENSION
     Dosage: 25 MILLIGRAM DAILY; 25 MG, 1X/DAY:QD
     Route: 048
     Dates: start: 2015
  9. FLUPIRTINA [Concomitant]
     Active Substance: FLUPIRTINE MALEATE
     Indication: PAIN
     Dosage: 400 MILLIGRAM DAILY; 400 MG, 1X/DAY:QD
     Route: 048
  10. PREDNISOLON                        /00016201/ [Concomitant]
     Active Substance: PREDNISOLONE
     Indication: ADRENAL INSUFFICIENCY
     Dosage: 7.5 MILLIGRAM DAILY; 7.5 MG, 1X/DAY:QD
     Route: 048
     Dates: start: 20160618, end: 20161017
  11. NOVAMINSULFON [Concomitant]
     Active Substance: METAMIZOLE
     Indication: PAIN
     Dosage: 60 GTT DAILY; 60 GTT, AS REQ^D
     Route: 048
  12. CEFUROXIM                          /00454601/ [Concomitant]
     Active Substance: CEFUROXIME
     Indication: SYRINGE ISSUE
     Route: 065
  13. FLUDROCORTISONE [Concomitant]
     Active Substance: FLUDROCORTISONE
     Indication: ADRENAL INSUFFICIENCY
     Dosage: 0.1 MG, OTHER (1?0?0.5)
     Route: 048
     Dates: start: 201507
  14. COLECALCIFEROL [Concomitant]
     Active Substance: CHOLECALCIFEROL
     Indication: OSTEOPOROSIS
     Dosage: 20000 IU, OTHER (TWICE PER WEEK)
     Route: 049
     Dates: start: 201508
  15. BUDESONID [Concomitant]
     Active Substance: BUDESONIDE
     Indication: CHRONIC OBSTRUCTIVE PULMONARY DISEASE
     Dosage: 1 DOSAGE FORMS DAILY; 1 DF (1 PUFF), 2X/DAY:BID
     Route: 055
     Dates: start: 2015
  16. HYDROCORTISONE. [Concomitant]
     Active Substance: HYDROCORTISONE
     Indication: ADRENAL INSUFFICIENCY
     Dosage: 5 MILLIGRAM DAILY; 5 MG, 1X/DAY:QD
     Route: 048
     Dates: start: 201606, end: 20161017
  17. KREON                              /00014701/ [Concomitant]
     Active Substance: PANCRELIPASE
     Indication: BILE ACID MALABSORPTION
     Dosage: 25000 IU (INTERNATIONAL UNIT) DAILY; 25000 IU, 3X/DAY:TID
     Route: 048
     Dates: start: 2015
  18. L?TRYPTOPHAN [Concomitant]
     Active Substance: TRYPTOPHAN
     Indication: SUPPLEMENTATION THERAPY
     Dosage: 500 MILLIGRAM DAILY; 500 MG, 1X/DAY:QD
     Route: 048
     Dates: start: 2015
  19. DEHYDROEPIANDROSTERONE [Concomitant]
     Active Substance: PRASTERONE
     Indication: ADRENAL INSUFFICIENCY
     Dosage: 25 MILLIGRAM DAILY; 25 MG, 1X/DAY:QD
     Route: 048
     Dates: start: 201512
  20. HYDROCORTISONE COMPARATOR [Suspect]
     Active Substance: HYDROCORTISONE
     Indication: ADRENAL INSUFFICIENCY
     Dosage: 35?70, AS REQ^D
     Route: 058
     Dates: start: 201312
  21. COLESTYRAMIN [Concomitant]
     Active Substance: CHOLESTYRAMINE
     Indication: BILE ACID MALABSORPTION
     Dosage: 4 GRAM DAILY; 4 G, 3X/DAY:TID
     Route: 048
     Dates: start: 201511
  22. MAGNESIUM [Concomitant]
     Active Substance: MAGNESIUM
     Indication: SUPPLEMENTATION THERAPY
     Dosage: 1200 MILLIGRAM DAILY; 1200 MG, 1X/DAY:QD
     Route: 048
     Dates: start: 2015, end: 201610
  23. AMOXICILLIN. [Concomitant]
     Active Substance: AMOXICILLIN
     Indication: UPPER RESPIRATORY TRACT INFECTION
     Route: 065

REACTIONS (1)
  - Adrenocortical insufficiency acute [Recovered/Resolved]

NARRATIVE: CASE EVENT DATE: 20161017
